FAERS Safety Report 6348066-6 (Version None)
Quarter: 2009Q3

REPORT INFORMATION
  Report Type: 
  Country: None (occurrence: None)
  Receive Date: 20090908
  Receipt Date: 20090823
  Transmission Date: 20100115
  Serious: Yes (Hospitalization)
  Sender: FDA-Public Use
  Company Number: GB-000782

PATIENT
  Sex: Female

DRUGS (4)
  1. DESMOPRESSIN (DESMOSPRAY) [Suspect]
     Dosage: (NASAL)
     Route: 045
     Dates: start: 19980507
  2. SOMATROPIN (SOMATROPIN) [Suspect]
     Indication: HYPOPITUITARISM
     Dosage: (SUBCUTANEOUS)
     Route: 058
     Dates: start: 20060913
  3. HYDROCORTISONE [Suspect]
     Dosage: 20 MG
     Route: 048
     Dates: start: 19980507
  4. LEVOTHYROXINE (THYROXINE) 125 UG [Suspect]
     Dosage: 125 UG
     Dates: start: 19980507

REACTIONS (2)
  - BLOOD POTASSIUM DECREASED [None]
  - BLOOD SODIUM DECREASED [None]
